FAERS Safety Report 5670123-8 (Version None)
Quarter: 2008Q1

REPORT INFORMATION
  Report Type: 
  Country: None (occurrence: None)
  Receive Date: 20080312
  Receipt Date: 20080227
  Transmission Date: 20080703
  Serious: Yes (Hospitalization)
  Sender: FDA-Public Use
  Company Number: 2008-172723-NL

PATIENT
  Age: 35 Year
  Sex: Female

DRUGS (3)
  1. CHORIONIC GONADOTROPIN [Suspect]
     Indication: INFERTILITY
  2. MENOTROPINS [Suspect]
     Indication: INFERTILITY
  3. CLOMIPHENE CITRATE [Suspect]
     Indication: INFERTILITY

REACTIONS (4)
  - DRUG EXPOSURE BEFORE PREGNANCY [None]
  - HAEMORRHAGIC OVARIAN CYST [None]
  - OVARIAN CYST TORSION [None]
  - PREGNANCY [None]
